FAERS Safety Report 13912136 (Version 1)
Quarter: 2017Q3

REPORT INFORMATION
  Report Type: Spontaneous
  Country: US (occurrence: US)
  Receive Date: 20170828
  Receipt Date: 20170828
  Transmission Date: 20171127
  Serious: No
  Sender: FDA-Public Use
  Company Number: US-ROCHE-1166187

PATIENT
  Age: 40 Year
  Sex: Female

DRUGS (1)
  1. NUTROPIN AQ [Suspect]
     Active Substance: SOMATROPIN
     Indication: PRODUCT USED FOR UNKNOWN INDICATION
     Route: 058
     Dates: start: 20111201

REACTIONS (6)
  - Heart rate increased [Recovered/Resolved]
  - Psychomotor hyperactivity [Recovered/Resolved]
  - Incorrect dose administered [Unknown]
  - Anxiety [Recovered/Resolved]
  - Thirst [Not Recovered/Not Resolved]
  - Initial insomnia [Recovered/Resolved]

NARRATIVE: CASE EVENT DATE: 20121206
